FAERS Safety Report 6507153-X (Version None)
Quarter: 2009Q4

REPORT INFORMATION
  Report Type: 
  Country: None (occurrence: None)
  Receive Date: 20091221
  Receipt Date: 20091210
  Transmission Date: 20100525
  Serious: Yes (Other)
  Sender: FDA-Public Use
  Company Number: PHHY2009CA50096

PATIENT
  Sex: Female

DRUGS (7)
  1. EXELON [Suspect]
     Indication: DEMENTIA
     Dosage: 6 MG, BID (TOOK ONLY ONE DOSE)
     Route: 048
     Dates: start: 20091028, end: 20091028
  2. NASONEX [Concomitant]
     Dosage: PRN
  3. ASPIRIN [Concomitant]
     Dosage: 81 MG
  4. FOSAMAX [Concomitant]
     Dosage: ONE TABLET WEEKLY
  5. LORAZEPAM [Concomitant]
     Dosage: 1 MG PRN BID
  6. COLESTID [Concomitant]
     Dosage: 0.5 MG WEEKLY
  7. LACTULOSE [Concomitant]

REACTIONS (5)
  - ASTHENIA [None]
  - DEHYDRATION [None]
  - DIARRHOEA [None]
  - NAUSEA [None]
  - VOMITING [None]
